FAERS Safety Report 24704429 (Version 1)
Quarter: 2024Q4

REPORT INFORMATION
  Report Type: Spontaneous
  Country: AU (occurrence: AU)
  Receive Date: 20241206
  Receipt Date: 20241206
  Transmission Date: 20250115
  Serious: Yes (Other)
  Sender: AMGEN
  Company Number: AU-AMGEN-AUSSP2024236817

PATIENT
  Sex: Female

DRUGS (1)
  1. PROLIA [Suspect]
     Active Substance: DENOSUMAB
     Indication: Product used for unknown indication
     Dosage: UNK
     Route: 065

REACTIONS (16)
  - Inclusion body myositis [Unknown]
  - Hair texture abnormal [Unknown]
  - Neck pain [Unknown]
  - Dysphagia [Unknown]
  - Aphonia [Unknown]
  - Dry skin [Unknown]
  - Headache [Unknown]
  - Bone pain [Unknown]
  - Pain in extremity [Unknown]
  - Myalgia [Unknown]
  - Muscular weakness [Unknown]
  - Alopecia [Unknown]
  - Pruritus [Unknown]
  - Weight decreased [Unknown]
  - Erythema [Unknown]
  - Rash [Unknown]
